FAERS Safety Report 7657432-8 (Version None)
Quarter: 2011Q3

REPORT INFORMATION
  Report Type: 
  Country: None (occurrence: None)
  Receive Date: 20110804
  Receipt Date: 20110726
  Transmission Date: 20111222
  Serious: Yes (Hospitalization)
  Sender: FDA-Public Use
  Company Number: BR-MEDIMMUNE-MEDI-0013355

PATIENT
  Sex: Female
  Weight: 3.9 kg

DRUGS (3)
  1. SYNAGIS [Suspect]
     Dosage: ACCORDING TO THE PATIENT'S WEIGHT
     Dates: start: 20110614, end: 20110614
  2. SYNAGIS [Suspect]
     Dates: start: 20110712, end: 20110726
  3. FERROUS SULFATE TAB [Concomitant]
     Route: 048
     Dates: start: 20110622

REACTIONS (4)
  - INFLUENZA [None]
  - BRONCHIOLITIS [None]
  - FATIGUE [None]
  - RESPIRATORY SYNCYTIAL VIRUS INFECTION [None]
